FAERS Safety Report 6056892-6 (Version None)
Quarter: 2009Q1

REPORT INFORMATION
  Report Type: 
  Country: None (occurrence: None)
  Receive Date: 20090129
  Receipt Date: 20090119
  Transmission Date: 20090719
  Serious: Yes (Hospitalization)
  Sender: FDA-Public Use
  Company Number: B0555004A

PATIENT
  Age: 63 Year
  Sex: Female

DRUGS (13)
  1. ZOVIRAX [Suspect]
     Indication: HERPES ZOSTER
     Route: 042
     Dates: start: 20080517, end: 20080519
  2. ZELITREX [Concomitant]
     Indication: HERPES ZOSTER
     Dosage: 1000MG THREE TIMES PER DAY
     Route: 048
     Dates: start: 20080514
  3. TOPALGIC (FRANCE) [Concomitant]
     Indication: HERPES ZOSTER
     Dosage: 100MG TWICE PER DAY
     Route: 048
     Dates: start: 20080514
  4. MOTILIUM [Concomitant]
     Dosage: 10MG THREE TIMES PER DAY
     Route: 048
     Dates: start: 20080514
  5. LOXEN [Concomitant]
     Route: 048
     Dates: end: 20080514
  6. LEVOTHYROX [Concomitant]
  7. CALCIUM D3 [Concomitant]
  8. ACETAMINOPHEN [Concomitant]
  9. COSOPT [Concomitant]
  10. XALATAN [Concomitant]
  11. ALPHAGAN [Concomitant]
  12. DIAMOX [Concomitant]
  13. DIFFU K [Concomitant]

REACTIONS (7)
  - HAEMATURIA [None]
  - HENOCH-SCHONLEIN PURPURA [None]
  - LEUKOCYTOCLASTIC VASCULITIS [None]
  - LYMPHOPENIA [None]
  - MONONUCLEOSIS SYNDROME [None]
  - PROTEINURIA [None]
  - VASCULAR PURPURA [None]
